FAERS Safety Report 12877022 (Version 5)
Quarter: 2017Q4

REPORT INFORMATION
  Report Type: Report from Study
  Country: CZ (occurrence: CZ)
  Receive Date: 20161024
  Receipt Date: 20171003
  Transmission Date: 20180320
  Serious: Yes (Hospitalization)
  Sender: FDA-Public Use
  Company Number: CZ-BIOGEN-2016BI00273456

PATIENT
  Age: 42 Year
  Sex: Male
  Weight: 83 kg

DRUGS (1)
  1. DACLIZUMAB HYP [Suspect]
     Active Substance: DACLIZUMAB
     Indication: MULTIPLE SCLEROSIS
     Route: 058
     Dates: start: 20151006, end: 20160524

REACTIONS (1)
  - Reiter^s syndrome [Recovered/Resolved with Sequelae]

NARRATIVE: CASE EVENT DATE: 20160726
